FAERS Safety Report 9358315 (Version 1)
Quarter: 2013Q2

REPORT INFORMATION
  Report Type: Report from Study
  Country: US (occurrence: US)
  Receive Date: 20130620
  Receipt Date: 20130620
  Transmission Date: 20140414
  Serious: Yes (Hospitalization)
  Sender: FDA-Public Use
  Company Number: US-ROCHE-1238707

PATIENT
  Sex: 0

DRUGS (2)
  1. XOLAIR [Suspect]
     Indication: ASTHMA
     Route: 065
  2. XOLAIR [Suspect]
     Indication: HYPERSENSITIVITY

REACTIONS (11)
  - Femur fracture [Unknown]
  - Cholecystectomy [Unknown]
  - Local swelling [Unknown]
  - Sinusitis [Unknown]
  - Cough [Unknown]
  - Dyspnoea [Unknown]
  - Chest discomfort [Unknown]
  - Thyroid disorder [Unknown]
  - Spinal muscular atrophy [Unknown]
  - Night sweats [Unknown]
  - Insomnia [Unknown]
